FAERS Safety Report 8336235-5 (Version None)
Quarter: 2012Q2

REPORT INFORMATION
  Report Type: 
  Country: None (occurrence: None)
  Receive Date: 20120504
  Receipt Date: 20120425
  Transmission Date: 20120825
  Serious: Yes (Hospitalization)
  Sender: FDA-Public Use
  Company Number: FR-SANOFI-AVENTIS-2012SA028904

PATIENT
  Age: 76 Year
  Sex: Female

DRUGS (4)
  1. ACETAMINOPHEN [Concomitant]
     Dates: end: 20111001
  2. LOVENOX [Suspect]
     Route: 065
     Dates: end: 20111001
  3. ALLOPURINOL [Concomitant]
     Dates: end: 20111001
  4. CIPROFLOXACIN HYDROCHLORIDE [Concomitant]
     Dates: end: 20111001

REACTIONS (6)
  - CHOLESTASIS [None]
  - DRUG RASH WITH EOSINOPHILIA AND SYSTEMIC SYMPTOMS [None]
  - PYREXIA [None]
  - EOSINOPHILIA [None]
  - RENAL FAILURE ACUTE [None]
  - DERMATITIS EXFOLIATIVE [None]
